FAERS Safety Report 5830552-6 (Version None)
Quarter: 2008Q3

REPORT INFORMATION
  Report Type: 
  Country: None (occurrence: None)
  Receive Date: 20080801
  Receipt Date: 20070712
  Transmission Date: 20090109
  Serious: No
  Sender: FDA-Public Use
  Company Number: US-BRISTOL-MYERS SQUIBB COMPANY-13845326

PATIENT

DRUGS (1)
  1. COUMADIN [Suspect]
     Indication: HYPERCOAGULATION
     Dosage: ALTERNATES DOSAGE OF 6MG ON MONDAY/THURSDAY.

REACTIONS (2)
  - DRUG INEFFECTIVE [None]
  - INTERNATIONAL NORMALISED RATIO INCREASED [None]
